FAERS Safety Report 9649245 (Version 2)
Quarter: 2014Q1

REPORT INFORMATION
  Report Type: Spontaneous
  Country: US (occurrence: US)
  Receive Date: 20131028
  Receipt Date: 20140114
  Transmission Date: 20141002
  Serious: Yes (Hospitalization)
  Sender: FDA-Public Use
  Company Number: US-GLAXOSMITHKLINE-A1046476A

PATIENT
  Age: 56 Year
  Sex: Female

DRUGS (10)
  1. ARIXTRA [Suspect]
     Indication: THROMBOSIS
     Route: 058
     Dates: start: 201301
  2. COUMADIN [Suspect]
     Dosage: 1TAB SINGLE DOSE
     Dates: start: 201301, end: 201301
  3. HEPARIN [Suspect]
     Dates: start: 201301, end: 201301
  4. UNSPECIFIED MEDICATION [Suspect]
  5. KLONOPIN [Concomitant]
     Dates: start: 1991
  6. CATAPRES [Concomitant]
     Dates: start: 1991
  7. NEURONTIN [Concomitant]
     Dates: start: 1991
  8. PHENOBARBITAL [Concomitant]
     Dates: start: 1991
  9. LOVAZA [Concomitant]
     Dates: start: 1991
  10. VITAMIN C [Concomitant]
     Dates: start: 1991

REACTIONS (5)
  - Pulmonary embolism [Recovering/Resolving]
  - Chest discomfort [Recovering/Resolving]
  - Anxiety [Recovering/Resolving]
  - Condition aggravated [Recovering/Resolving]
  - Dyspnoea [Recovering/Resolving]
